FAERS Safety Report 7466002 (Version 2)
Quarter: 2013Q2

REPORT INFORMATION
  Report Type: Spontaneous
  Country: US (occurrence: US)
  Receive Date: 20100712
  Receipt Date: 20130425
  Transmission Date: 20140414
  Serious: Yes (Hospitalization, Other)
  Sender: FDA-Public Use
  Company Number: US-PFIZER INC-2010082454

PATIENT
  Age: 18 Month
  Sex: Female
  Weight: 11.2 kg

DRUGS (2)
  1. DILANTIN-125 [Suspect]
     Indication: CONVULSION
     Dosage: 1.2 ML, 2X/DAY
     Route: 048
     Dates: start: 19960820, end: 199609
  2. TEGRETOL [Suspect]
     Indication: CONVULSION
     Dosage: 100MG/5ML SUSPENSION ONE TEA SPOON THRICE DAILY
     Route: 048
     Dates: start: 19950216, end: 199609

REACTIONS (30)
  - Stevens-Johnson syndrome [Recovering/Resolving]
  - Kawasaki^s disease [Recovering/Resolving]
  - Dehydration [Recovered/Resolved]
  - Diarrhoea [Recovered/Resolved]
  - Hand-foot-and-mouth disease [Recovered/Resolved]
  - Overweight [Unknown]
  - Speech disorder [Unknown]
  - Blood pressure systolic increased [Unknown]
  - Depression [Recovering/Resolving]
  - Intentional self-injury [Recovering/Resolving]
  - Dyskinesia [Recovering/Resolving]
  - Attention deficit/hyperactivity disorder [Unknown]
  - Apnoea [Unknown]
  - Hypoglycaemia [Unknown]
  - Syncope [Unknown]
  - Blood glucose increased [Unknown]
  - Dental caries [Recovered/Resolved]
  - Developmental delay [Unknown]
  - Speech disorder developmental [Unknown]
  - Chalazion [Unknown]
  - Nasal congestion [Unknown]
  - Snoring [Unknown]
  - Oropharyngeal pain [Unknown]
  - Weight decreased [Unknown]
  - Tinea capitis [Unknown]
  - Chest pain [Unknown]
  - Anxiety [Recovering/Resolving]
  - Headache [Unknown]
  - Dizziness [Unknown]
  - Agitation [Recovering/Resolving]
